FAERS Safety Report 15061741 (Version 4)
Quarter: 2018Q4

REPORT INFORMATION
  Report Type: Report from Study
  Country: None (occurrence: US)
  Receive Date: 20180625
  Receipt Date: 20181101
  Transmission Date: 20190204
  Serious: Yes (Death, Hospitalization)
  Sender: FDA-Public Use
  Company Number: US-ABBVIE-18P-163-2393524-00

PATIENT
  Age: 75 Year
  Sex: Female
  Weight: 52 kg

DRUGS (13)
  1. VENETOCLAX. [Suspect]
     Active Substance: VENETOCLAX
     Route: 048
     Dates: start: 20180523, end: 20180617
  2. XANAX [Concomitant]
     Active Substance: ALPRAZOLAM
     Indication: ANXIETY
     Route: 048
     Dates: start: 20180504, end: 20180619
  3. AZACITIDINE. [Suspect]
     Active Substance: AZACITIDINE
     Indication: ACUTE MYELOID LEUKAEMIA
     Dosage: DAYS 1-7 OF EACH 28 DAY CYCLE
     Route: 042
     Dates: start: 20180521, end: 20180527
  4. ALLOPURINOL. [Concomitant]
     Active Substance: ALLOPURINOL
     Indication: PROPHYLAXIS
     Route: 048
     Dates: start: 20180521
  5. NORMAL SALINE SOLUTION (0.9% SODIUM CHLORIDE) [Concomitant]
     Indication: FLUID REPLACEMENT
     Dosage: 50 ML/HR
     Route: 042
     Dates: start: 20180526, end: 20180527
  6. ACYCLOVIR. [Concomitant]
     Active Substance: ACYCLOVIR
     Indication: ANTIVIRAL PROPHYLAXIS
     Route: 048
     Dates: start: 20180521, end: 20180619
  7. VENETOCLAX. [Suspect]
     Active Substance: VENETOCLAX
     Route: 048
     Dates: start: 20180522, end: 20180522
  8. NORMAL SALINE SOLUTION (0.9% SODIUM CHLORIDE) [Concomitant]
     Dosage: 10 ML/HR
     Route: 042
     Dates: start: 20180604, end: 20180604
  9. VENETOCLAX. [Suspect]
     Active Substance: VENETOCLAX
     Indication: ACUTE MYELOID LEUKAEMIA
     Route: 048
     Dates: start: 20180521, end: 20180521
  10. LEVAQUIN [Concomitant]
     Active Substance: LEVOFLOXACIN
     Indication: ANTIBIOTIC PROPHYLAXIS
     Route: 048
     Dates: start: 20180601, end: 20180617
  11. PROTONIX [Concomitant]
     Active Substance: PANTOPRAZOLE SODIUM
     Indication: GASTROOESOPHAGEAL REFLUX PROPHYLAXIS
     Route: 048
     Dates: start: 20180520
  12. NORMAL SALINE SOLUTION (0.9% SODIUM CHLORIDE) [Concomitant]
     Indication: PROPHYLAXIS
     Dosage: 100 ML/HR
     Route: 042
     Dates: start: 20180520, end: 20180522
  13. VILAZODONE [Concomitant]
     Active Substance: VILAZODONE
     Indication: DEPRESSION
     Route: 048
     Dates: start: 2018, end: 20180619

REACTIONS (4)
  - Nausea [Unknown]
  - Fungal sepsis [Recovered/Resolved]
  - Fungal sepsis [Fatal]
  - Fatigue [Unknown]

NARRATIVE: CASE EVENT DATE: 20180617
